FAERS Safety Report 22374182 (Version 1)
Quarter: 2023Q2

REPORT INFORMATION
  Report Type: Spontaneous
  Country: CN (occurrence: None)
  Receive Date: 20230526
  Receipt Date: 20230526
  Transmission Date: 20230721
  Serious: Yes (Life-Threatening, Other)
  Sender: FDA-Public Use
  Company Number: 2023A123010

PATIENT
  Age: 67 Year
  Sex: Male

DRUGS (9)
  1. OSIMERTINIB [Suspect]
     Active Substance: OSIMERTINIB
     Indication: Lung adenocarcinoma
     Route: 048
  2. AMIODARONE HYDROCHLORIDE [Suspect]
     Active Substance: AMIODARONE HYDROCHLORIDE
     Dosage: (FROM JUNE 15 TO JUNE 24)
     Route: 048
  3. AMIODARONE HYDROCHLORIDE [Suspect]
     Active Substance: AMIODARONE HYDROCHLORIDE
     Dosage: (FROM JUNE 25 TO JUNE 28)
     Route: 048
  4. MOXIFLOXACIN HYDROCHLORIDE [Suspect]
     Active Substance: MOXIFLOXACIN HYDROCHLORIDE
     Indication: Pneumonia
     Dosage: (FROM JUNE 25 TO JUNE 28)
     Route: 042
  5. EPINEPHRINE [Concomitant]
     Active Substance: EPINEPHRINE
  6. ATROPINE [Concomitant]
     Active Substance: ATROPINE
  7. LIDOCAINE [Concomitant]
     Active Substance: LIDOCAINE
  8. ISOPROTERENOL [Concomitant]
     Active Substance: ISOPROTERENOL
     Dosage: 2.7UG/KG/MIN
  9. ESMOLOL [Concomitant]
     Active Substance: ESMOLOL HYDROCHLORIDE

REACTIONS (2)
  - Cardiac disorder [Recovering/Resolving]
  - Torsade de pointes [Recovering/Resolving]
